FAERS Safety Report 9712015 (Version 1)
Quarter: 2013Q4

REPORT INFORMATION
  Report Type: Spontaneous
  Country: US (occurrence: US)
  Receive Date: 20131126
  Receipt Date: 20131126
  Transmission Date: 20140711
  Serious: No
  Sender: FDA-Public Use
  Company Number: US-BRISTOL-MYERS SQUIBB COMPANY-19129329

PATIENT
  Age: 60 Year
  Sex: Female
  Weight: 72.56 kg

DRUGS (6)
  1. BYDUREON [Suspect]
     Indication: TYPE 2 DIABETES MELLITUS
     Dates: start: 20130707
  2. METFORMIN [Concomitant]
     Route: 048
  3. LOSARTAN [Concomitant]
  4. PRAVASTATIN SODIUM [Concomitant]
  5. ASPIRIN [Concomitant]
     Route: 048
  6. GLIMEPIRIDE [Concomitant]
     Route: 048

REACTIONS (4)
  - Injection site swelling [Not Recovered/Not Resolved]
  - Injection site erythema [Not Recovered/Not Resolved]
  - Injection site pruritus [Not Recovered/Not Resolved]
  - Drug ineffective [Unknown]
